FAERS Safety Report 23779616 (Version 5)
Quarter: 2024Q4

REPORT INFORMATION
  Report Type: Report from Study
  Country: FR (occurrence: FR)
  Receive Date: 20240424
  Receipt Date: 20241220
  Transmission Date: 20250115
  Serious: Yes (Hospitalization, Other)
  Sender: SPRINGWORKS THERAPEUTIC
  Company Number: FR-SPRINGWORKS THERAPEUTICS-SW-001566

PATIENT

DRUGS (16)
  1. NIROGACESTAT [Suspect]
     Active Substance: NIROGACESTAT
     Indication: Desmoid tumour
     Dosage: 100 MILLIGRAM, BID
     Route: 048
     Dates: start: 20240402, end: 20240415
  2. NIROGACESTAT [Suspect]
     Active Substance: NIROGACESTAT
     Dosage: 1.5 MILLIGRAM, BID
     Dates: start: 20240624, end: 20240624
  3. NIROGACESTAT [Suspect]
     Active Substance: NIROGACESTAT
     Dosage: 5 MILLIGRAM, BID
     Dates: start: 20240625, end: 20240625
  4. NIROGACESTAT [Suspect]
     Active Substance: NIROGACESTAT
     Dosage: 10 MILLIGRAM, BID
     Dates: start: 20240626, end: 20240626
  5. NIROGACESTAT [Suspect]
     Active Substance: NIROGACESTAT
     Dosage: 15 MILLIGRAM, BID
     Dates: start: 20240627, end: 20240627
  6. NIROGACESTAT [Suspect]
     Active Substance: NIROGACESTAT
     Dosage: 30 MILLIGRAM, BID
     Dates: start: 20240628, end: 20240628
  7. NIROGACESTAT [Suspect]
     Active Substance: NIROGACESTAT
     Dosage: 50 MILLIGRAM, BID
     Dates: start: 20240629, end: 20240629
  8. NIROGACESTAT [Suspect]
     Active Substance: NIROGACESTAT
     Dosage: 75 MILLIGRAM, BID
     Dates: start: 20240630, end: 20240630
  9. NIROGACESTAT [Suspect]
     Active Substance: NIROGACESTAT
     Dosage: 100 MILLIGRAM, BID
     Dates: start: 20240701, end: 20241128
  10. NIROGACESTAT [Suspect]
     Active Substance: NIROGACESTAT
     Dosage: 100 MILLIGRAM, BID
     Dates: start: 20241217
  11. LEVOTHYROXINE [Concomitant]
     Active Substance: LEVOTHYROXINE
     Indication: Hypothyroidism
     Dosage: 100 MICROGRAM, QD
     Route: 048
  12. PREGABALIN [Concomitant]
     Active Substance: PREGABALIN
     Indication: Pain
     Dosage: 150 MILLIGRAM, QD
     Route: 048
  13. PREGABALIN [Concomitant]
     Active Substance: PREGABALIN
     Dosage: 100 MILLIGRAM, BID
  14. FENTANYL [Concomitant]
     Active Substance: FENTANYL
     Indication: Pain
     Dosage: 75 MICROGRAM, 1/48H
     Route: 062
  15. MORPHINE SULFATE [Concomitant]
     Active Substance: MORPHINE SULFATE
     Indication: Product used for unknown indication
     Dosage: 60 MILLIGRAM, BID
  16. MORPHINE SULFATE [Concomitant]
     Active Substance: MORPHINE SULFATE
     Dosage: 30 MILLIGRAM, BID

REACTIONS (7)
  - Rash papular [Recovered/Resolved]
  - Headache [Recovered/Resolved]
  - Nausea [Recovered/Resolved]
  - Diarrhoea [Recovered/Resolved]
  - Stomatitis [Recovered/Resolved]
  - Product distribution issue [Unknown]
  - Therapy interrupted [Unknown]

NARRATIVE: CASE EVENT DATE: 20240403
